FAERS Safety Report 8033033-7 (Version None)
Quarter: 2011Q4

REPORT INFORMATION
  Report Type: 
  Country: None (occurrence: None)
  Receive Date: 20111223
  Receipt Date: 20111215
  Transmission Date: 20120403
  Serious: Yes (Hospitalization)
  Sender: FDA-Public Use
  Company Number: 2011SP058356

PATIENT
  Sex: Female

DRUGS (2)
  1. CORTISONE ACETATE [Concomitant]
  2. GANIRELIX ACETATE INJECTION [Suspect]
     Indication: ASSISTED FERTILISATION
     Dates: start: 20111214, end: 20111214

REACTIONS (2)
  - ANAPHYLACTIC SHOCK [None]
  - SKIN IRRITATION [None]
